FAERS Safety Report 24241976 (Version 2)
Quarter: 2024Q3

REPORT INFORMATION
  Report Type: Spontaneous
  Country: GB (occurrence: GB)
  Receive Date: 20240823
  Receipt Date: 20240904
  Transmission Date: 20241016
  Serious: Yes (Hospitalization, Other)
  Sender: HIKMA
  Company Number: GB-ORESUND-24OPAJY0115P

PATIENT
  Age: 21 Month
  Sex: Male

DRUGS (10)
  1. CISPLATIN [Suspect]
     Active Substance: CISPLATIN
     Indication: Primitive neuroectodermal tumour
     Dosage: UNK, 5 CYCLES
     Route: 065
  2. CORTICOSTEROID NOS [Suspect]
     Active Substance: CORTICOSTEROID NOS
     Indication: Product used for unknown indication
     Dosage: UNK
     Route: 065
  3. CYCLOPHOSPHAMIDE [Suspect]
     Active Substance: CYCLOPHOSPHAMIDE
     Indication: Primitive neuroectodermal tumour
     Dosage: UNK, 5 CYCLES
     Route: 065
  4. ETOPOSIDE [Suspect]
     Active Substance: ETOPOSIDE
     Dosage: NOT APPLICABLE (COMPANY^S SUSPECT PRODUCT NOT ADMINISTERED)
  5. ETOPOSIDE [Suspect]
     Active Substance: ETOPOSIDE
     Indication: Primitive neuroectodermal tumour
     Dosage: UNKNOWN, 5 CYCLES
     Route: 065
  6. METHOTREXATE [Suspect]
     Active Substance: METHOTREXATE
     Indication: Primitive neuroectodermal tumour
     Dosage: UNK, 5 CYCLES
     Route: 065
  7. TRETINOIN [Suspect]
     Active Substance: TRETINOIN
     Indication: Primitive neuroectodermal tumour
     Dosage: UNK
     Route: 048
  8. TOPOTECAN [Suspect]
     Active Substance: TOPOTECAN HYDROCHLORIDE
     Indication: Primitive neuroectodermal tumour
     Dosage: UNK UNK, 4W
     Route: 037
  9. VALPROATE [Suspect]
     Active Substance: VALPROIC ACID
     Indication: Primitive neuroectodermal tumour
     Dosage: UNK
     Route: 048
  10. VINCRISTINE [Suspect]
     Active Substance: VINCRISTINE
     Indication: Primitive neuroectodermal tumour
     Dosage: UNK, 5 CYCLES
     Route: 065

REACTIONS (10)
  - Sepsis [Unknown]
  - Diffusion-weighted brain MRI abnormal [Unknown]
  - Disease recurrence [Unknown]
  - Acquired gene mutation [Unknown]
  - Metastasis [Unknown]
  - Central nervous system lesion [Unknown]
  - Seizure [Unknown]
  - Primitive neuroectodermal tumour [Unknown]
  - Somnolence [Unknown]
  - Drug ineffective [Unknown]
